FAERS Safety Report 4983945-3 (Version None)
Quarter: 2006Q2

REPORT INFORMATION
  Report Type: 
  Country: None (occurrence: None)
  Receive Date: 20060426
  Receipt Date: 20060116
  Transmission Date: 20061013
  Serious: Yes (Life-Threatening, Hospitalization, Disabling)
  Sender: FDA-Public Use
  Company Number: DE-MERCK-0601DEU00069

PATIENT
  Age: 64 Year
  Sex: Female

DRUGS (10)
  1. FOSAMAX [Suspect]
     Indication: OSTEOPOROSIS
     Route: 048
     Dates: start: 20031113, end: 20040201
  2. MAGNESIUM OROTATE [Concomitant]
     Route: 065
     Dates: start: 19950101
  3. AMYLASE AND BROMELAINS AND CHYMOTRYPSIN AND LIPASE AND PANCREATIN AND [Concomitant]
     Route: 065
     Dates: start: 20000101
  4. CALCIUM CITRATE AND CHOLECALCIFEROL [Concomitant]
     Route: 048
     Dates: start: 20010101
  5. METOPROLOL SUCCINATE [Concomitant]
     Route: 048
     Dates: start: 20010101
  6. PYRIDOXINE HYDROCHLORIDE AND THIAMINE HYDROCHLORIDE [Concomitant]
     Route: 065
     Dates: start: 20020101
  7. ETILEFRINE [Concomitant]
     Route: 065
     Dates: start: 20000101
  8. ATORVASTATIN CALCIUM [Concomitant]
     Route: 065
     Dates: start: 20000101
  9. MEDICINALPRODUCT NOT SPECIFIED BY SENDER [Concomitant]
     Route: 065
  10. MEDICINALPRODUCT NOT SPECIFIED BY SENDER [Concomitant]
     Route: 065

REACTIONS (5)
  - NASAL POLYPS [None]
  - NASAL SEPTUM DEVIATION [None]
  - OSTEOMYELITIS [None]
  - OSTEONECROSIS [None]
  - RHINITIS [None]
